FAERS Safety Report 12580275 (Version 1)
Quarter: 2016Q3

REPORT INFORMATION
  Report Type: Spontaneous
  Country: IL (occurrence: AT)
  Receive Date: 20160721
  Receipt Date: 20160721
  Transmission Date: 20161109
  Serious: Yes (Hospitalization, Other)
  Sender: FDA-Public Use
  Company Number: IL-ELI_LILLY_AND_COMPANY-AT201607003860

PATIENT
  Age: 52 Year
  Sex: Female
  Weight: 56.2 kg

DRUGS (36)
  1. ZYPREXA [Suspect]
     Active Substance: OLANZAPINE
     Dosage: 0.5 DF, EACH MORNING
     Route: 065
     Dates: start: 20160307
  2. LORAZEPAM. [Concomitant]
     Active Substance: LORAZEPAM
     Dosage: 1 DF, QD
     Route: 065
     Dates: start: 20160212
  3. NABILONE [Concomitant]
     Active Substance: NABILONE
     Dosage: 1 DF, EACH MORNING
     Route: 065
     Dates: start: 20160524
  4. TEMESTA                            /00273201/ [Concomitant]
     Active Substance: LORAZEPAM
     Indication: ANXIETY
     Dosage: 0.5 DF, TID, ON REQUEST
     Route: 065
  5. TEMESTA                            /00273201/ [Concomitant]
     Active Substance: LORAZEPAM
     Dosage: 1 MG, AS REQUIRED
     Route: 065
  6. LORAZEPAM. [Concomitant]
     Active Substance: LORAZEPAM
     Dosage: 0.5 UNK, UNK
     Route: 065
     Dates: start: 20160212
  7. FRISIUM [Concomitant]
     Active Substance: CLOBAZAM
     Indication: ANXIETY
     Dosage: 4 DF, UNK
     Route: 065
     Dates: start: 20160408
  8. FRISIUM [Concomitant]
     Active Substance: CLOBAZAM
     Dosage: 1 DF, EACH MORNING
     Dates: start: 20160518
  9. INDERAL [Concomitant]
     Active Substance: PROPRANOLOL HYDROCHLORIDE
     Dosage: 0.5 DF, EACH MORNING
     Route: 065
     Dates: start: 20160427, end: 20160502
  10. NABILONE [Concomitant]
     Active Substance: NABILONE
     Dosage: 1 DF, EACH EVENING
     Route: 065
     Dates: start: 20160518, end: 20160524
  11. ZYPREXA [Suspect]
     Active Substance: OLANZAPINE
     Dosage: 2.5 DF, EACH EVENING
     Route: 065
     Dates: start: 20160307
  12. FRISIUM [Concomitant]
     Active Substance: CLOBAZAM
     Dosage: 2 DF, EACH EVENING
     Route: 065
     Dates: start: 20160411, end: 20160413
  13. FRISIUM [Concomitant]
     Active Substance: CLOBAZAM
     Dosage: 1 DF, EACH EVENING
     Dates: start: 20160424
  14. NABILONE [Concomitant]
     Active Substance: NABILONE
     Indication: ANXIETY
     Dosage: 0.5 DF, EACH EVENING
     Route: 065
     Dates: start: 20160429, end: 20160502
  15. ZYPREXA [Suspect]
     Active Substance: OLANZAPINE
     Dosage: 0.5 DF, EACH MORNING
     Route: 065
     Dates: start: 20160301, end: 20160307
  16. BROTIZOLAM [Concomitant]
     Active Substance: BROTIZOLAM
     Indication: INSOMNIA
     Dosage: 1-2 ON REQUEST
     Dates: start: 20160502, end: 20160613
  17. ZYPREXA [Suspect]
     Active Substance: OLANZAPINE
     Indication: PARANOIA
     Dosage: 1 DF, EACH EVENING
     Route: 065
     Dates: start: 20160212, end: 20160229
  18. ZYPREXA [Suspect]
     Active Substance: OLANZAPINE
     Dosage: 1 DF, EACH EVENING
     Route: 065
     Dates: start: 20160408
  19. TEMESTA                            /00273201/ [Concomitant]
     Active Substance: LORAZEPAM
     Dosage: 0.5 DF, QD
     Route: 065
     Dates: start: 20160212
  20. FRISIUM [Concomitant]
     Active Substance: CLOBAZAM
     Dosage: 2 DF, EACH EVENING
     Route: 065
     Dates: start: 20160413
  21. FRISIUM [Concomitant]
     Active Substance: CLOBAZAM
     Dosage: 1 DF, EACH MORNING
     Route: 065
     Dates: start: 20160518
  22. INDERAL [Concomitant]
     Active Substance: PROPRANOLOL HYDROCHLORIDE
     Dosage: 0.5 DF, EACH MORNING
     Route: 065
     Dates: start: 20160427, end: 20160502
  23. NABILONE [Concomitant]
     Active Substance: NABILONE
     Indication: CHOREA
     Dosage: 0.5 DF, EACH EVENING
     Dates: start: 20160503, end: 20160517
  24. LORAZEPAM. [Concomitant]
     Active Substance: LORAZEPAM
     Indication: ANXIETY
     Dosage: 0.5 DF, EACH MORNING
     Route: 065
     Dates: start: 20160212
  25. FRISIUM [Concomitant]
     Active Substance: CLOBAZAM
     Indication: AKATHISIA
     Dosage: 1DF, EACH MORNING
     Route: 065
     Dates: start: 20160411, end: 20160413
  26. INDERAL [Concomitant]
     Active Substance: PROPRANOLOL HYDROCHLORIDE
     Dosage: 0.5 DF, EACH MORNING
     Route: 065
     Dates: start: 20160427, end: 20160502
  27. ZYPREXA [Suspect]
     Active Substance: OLANZAPINE
     Dosage: 1 DF, EACH EVENING
     Route: 065
     Dates: start: 20160301, end: 20160307
  28. PRIDOPIDINE [Suspect]
     Active Substance: PRIDOPIDINE
     Indication: HUNTINGTON^S DISEASE
     Dosage: UNK UNK, TID
     Route: 048
     Dates: start: 20150611
  29. TEMESTA                            /00273201/ [Concomitant]
     Active Substance: LORAZEPAM
     Dosage: 1 DF, EACH EVENING
     Route: 065
     Dates: start: 20160212
  30. FRISIUM [Concomitant]
     Active Substance: CLOBAZAM
     Dosage: 4 DF, ON REQUEST OF INNER DISTURBANCE
     Route: 065
  31. NABILONE [Concomitant]
     Active Substance: NABILONE
     Indication: AKATHISIA
     Dosage: 0.5 DF, EACH MORNING
     Dates: start: 20160503, end: 20160517
  32. NABILONE [Concomitant]
     Active Substance: NABILONE
     Dosage: 0.5 DF, EACH MORNING
     Route: 065
     Dates: start: 20160518, end: 20160524
  33. FRISIUM [Concomitant]
     Active Substance: CLOBAZAM
     Dosage: 1 DF, QD
     Route: 065
     Dates: start: 20160411, end: 20160413
  34. FRISIUM [Concomitant]
     Active Substance: CLOBAZAM
     Dosage: 1 DF, EACH MORNING
     Route: 065
     Dates: start: 20160413
  35. FRISIUM [Concomitant]
     Active Substance: CLOBAZAM
     Dosage: 1 DF, EACH MORNING
     Route: 065
     Dates: start: 20160518
  36. NABILONE [Concomitant]
     Active Substance: NABILONE
     Dosage: 1 DF, EACH EVENING
     Route: 065
     Dates: start: 20160524

REACTIONS (10)
  - Anxiety [Not Recovered/Not Resolved]
  - Suicidal ideation [Recovering/Resolving]
  - Paranoia [Recovered/Resolved]
  - Panic attack [Not Recovered/Not Resolved]
  - Insomnia [Not Recovered/Not Resolved]
  - Huntington^s disease [Not Recovered/Not Resolved]
  - Claustrophobia [Not Recovered/Not Resolved]
  - Delusion [Recovered/Resolved]
  - Nocturnal fear [Not Recovered/Not Resolved]
  - Akathisia [Recovered/Resolved]

NARRATIVE: CASE EVENT DATE: 20160207
